FAERS Safety Report 6535688-2 (Version None)
Quarter: 2010Q1

REPORT INFORMATION
  Report Type: 
  Country: None (occurrence: None)
  Receive Date: 20100106
  Receipt Date: 20091215
  Transmission Date: 20100710
  Serious: Yes (Life-Threatening, Other)
  Sender: FDA-Public Use
  Company Number: 003187

PATIENT
  Sex: Female
  Weight: 49 kg

DRUGS (4)
  1. XUSAL (XUSAL) [Suspect]
     Dosage: OVERDOSE 5 TABLETS ORAL
     Route: 048
     Dates: start: 20091215, end: 20091215
  2. DYSMENALGIT (DYSMENALGIT) [Suspect]
     Dosage: OVERDOSE 250 TABLETS ORAL
     Route: 048
     Dates: start: 20091215, end: 20091215
  3. NOVALGIN /00039501/ (NOVALGIN) (NOT SPECIFIED) [Suspect]
     Dosage: OVERDOSE 500 TABLETS ORAL
     Route: 048
     Dates: start: 20091215, end: 20091215
  4. VERMIDON /00509701/ (VERMIDON) [Suspect]
     Dosage: OVERDOSE ORAL
     Route: 048
     Dates: start: 20091215, end: 20091215

REACTIONS (3)
  - ABDOMINAL PAIN [None]
  - SOMNOLENCE [None]
  - SUICIDE ATTEMPT [None]
